FAERS Safety Report 6182814-3 (Version None)
Quarter: 2009Q2

REPORT INFORMATION
  Report Type: 
  Country: None (occurrence: None)
  Receive Date: 20090507
  Receipt Date: 20090507
  Transmission Date: 20091009
  Serious: Yes (Hospitalization, Other)
  Sender: FDA-Public Use
  Company Number: US-PFIZER INC-2009180432

PATIENT
  Sex: Male
  Weight: 114.74 kg

DRUGS (8)
  1. GEODON [Suspect]
     Indication: SCHIZOAFFECTIVE DISORDER
     Dosage: UNK
  2. ADVAIR HFA [Concomitant]
     Dosage: 1 UNK, UNK
  3. ALBUTEROL [Concomitant]
     Dosage: UNK
  4. MYLANTA [Concomitant]
     Dosage: 30 ML, AS NEEDED
  5. DEPAKOTE [Concomitant]
  6. HYDROXYZINE [Concomitant]
     Dosage: 50 MG, 2X/DAY
  7. MILK OF MAGNESIA TAB [Concomitant]
     Dosage: 30 ML, AS NEEDED
  8. NICOTINE [Concomitant]
     Dosage: 21 MG, 1X/DAY

REACTIONS (4)
  - ALANINE AMINOTRANSFERASE INCREASED [None]
  - ANXIETY [None]
  - ASPARTATE AMINOTRANSFERASE INCREASED [None]
  - DELUSION [None]
